FAERS Safety Report 10160721 (Version 1)
Quarter: 2014Q2

REPORT INFORMATION
  Report Type: Spontaneous
  Country: US (occurrence: None)
  Receive Date: 20140507
  Receipt Date: 20140507
  Transmission Date: 20141212
  Serious: No
  Sender: FDA-Public Use
  Company Number: None

PATIENT
  Sex: 0

DRUGS (1)
  1. ZOLPIDEM [Suspect]
     Indication: INSOMNIA
     Dosage: 5 MG, 1 PILL AT BEDTIME (DAILY), 1 AT BEDTIME (DAILY), MOUTH
     Route: 048
     Dates: start: 20140106, end: 20140301

REACTIONS (4)
  - Diplopia [None]
  - Dizziness [None]
  - Visual impairment [None]
  - Eye disorder [None]
